FAERS Safety Report 8461231-7 (Version None)
Quarter: 2012Q2

REPORT INFORMATION
  Report Type: 
  Country: None (occurrence: None)
  Receive Date: 20120619
  Receipt Date: 20120619
  Transmission Date: 20120825
  Serious: Yes (Other)
  Sender: FDA-Public Use
  Company Number: None

PATIENT
  Sex: Female

DRUGS (1)
  1. KEPPRA [Suspect]
     Indication: EPILEPSY
     Dosage: 500MG 2 TIMES DAY

REACTIONS (6)
  - FALL [None]
  - DYSSTASIA [None]
  - BALANCE DISORDER [None]
  - HAEMORRHAGE [None]
  - HEAD INJURY [None]
  - PRESYNCOPE [None]
